FAERS Safety Report 23301875 (Version 3)
Quarter: 2024Q1

REPORT INFORMATION
  Report Type: Spontaneous
  Country: AU (occurrence: AU)
  Receive Date: 20231215
  Receipt Date: 20240206
  Transmission Date: 20240410
  Serious: No
  Sender: FDA-Public Use
  Company Number: AU-PFIZER INC-PV202300196873

PATIENT

DRUGS (1)
  1. NGENLA [Suspect]
     Active Substance: SOMATROGON-GHLA
     Dosage: UNK

REACTIONS (4)
  - Injection site pain [Unknown]
  - Needle issue [Unknown]
  - Device difficult to use [Unknown]
  - Device physical property issue [Unknown]
